FAERS Safety Report 18423539 (Version 2)
Quarter: 2020Q4

REPORT INFORMATION
  Report Type: Report from Study
  Country: US (occurrence: US)
  Receive Date: 20201024
  Receipt Date: 20201221
  Transmission Date: 20210114
  Serious: No
  Sender: FDA-Public Use
  Company Number: US-B.I. PHARMACEUTICALS,INC./RIDGEFIELD-2020-BI-050424

PATIENT
  Age: 69 Year
  Sex: Female

DRUGS (2)
  1. OFEV [Suspect]
     Active Substance: NINTEDANIB
     Indication: IDIOPATHIC PULMONARY FIBROSIS
     Dosage: 150MG BID
     Route: 048
     Dates: start: 20200805
  2. OFEV [Suspect]
     Active Substance: NINTEDANIB
     Dates: start: 20200915

REACTIONS (6)
  - Diarrhoea [Unknown]
  - Diarrhoea [Recovered/Resolved with Sequelae]
  - Tremor [Not Recovered/Not Resolved]
  - Cough [Unknown]
  - Balance disorder [Unknown]
  - Nausea [Unknown]
